FAERS Safety Report 8577437-2 (Version None)
Quarter: 2012Q3

REPORT INFORMATION
  Report Type: 
  Country: None (occurrence: None)
  Receive Date: 20120807
  Receipt Date: 20120801
  Transmission Date: 20120928
  Serious: Yes (Hospitalization)
  Sender: FDA-Public Use
  Company Number: PHHY2012AU066287

PATIENT
  Age: 77 Year
  Sex: Male

DRUGS (4)
  1. HEPARIN [Suspect]
     Indication: PROPHYLAXIS
  2. VASOPRESSIN AND ANALOGUES [Concomitant]
  3. VERAPAMIL [Concomitant]
     Indication: TOXICITY TO VARIOUS AGENTS
  4. EPINEPHRINE [Concomitant]

REACTIONS (4)
  - BACTERIAL SEPSIS [None]
  - HEPARIN-INDUCED THROMBOCYTOPENIA [None]
  - EPISTAXIS [None]
  - POST PROCEDURAL HAEMORRHAGE [None]
